FAERS Safety Report 7466427-9 (Version None)
Quarter: 2011Q2

REPORT INFORMATION
  Report Type: 
  Country: None (occurrence: None)
  Receive Date: 20110509
  Receipt Date: 20100812
  Transmission Date: 20111010
  Serious: No
  Sender: FDA-Public Use
  Company Number: US-ALEXION-A201000995

PATIENT
  Sex: Male

DRUGS (1)
  1. SOLIRIS [Suspect]
     Indication: PAROXYSMAL NOCTURNAL HAEMOGLOBINURIA

REACTIONS (7)
  - FATIGUE [None]
  - HEADACHE [None]
  - HICCUPS [None]
  - PAIN [None]
  - CHROMATURIA [None]
  - SOMNOLENCE [None]
  - DISTURBANCE IN ATTENTION [None]
